FAERS Safety Report 18848126 (Version 2)
Quarter: 2021Q2

REPORT INFORMATION
  Report Type: Report from Study
  Country: NL (occurrence: NL)
  Receive Date: 20210204
  Receipt Date: 20210603
  Transmission Date: 20210717
  Serious: Yes (Other)
  Sender: FDA-Public Use
  Company Number: NL-BAYER-2021-045179

PATIENT
  Age: 62 Year
  Sex: Male

DRUGS (10)
  1. SORAFENIB [Suspect]
     Active Substance: SORAFENIB
     Indication: HEPATOCELLULAR CARCINOMA
     Dosage: 300 MG Q.D. (400 MG ONE DAY AND 200 MG THE OTHER)
     Dates: start: 201802, end: 201805
  2. LOPERAMIDE [Concomitant]
     Active Substance: LOPERAMIDE
     Dosage: UNK
  3. METOPROLOL. [Concomitant]
     Active Substance: METOPROLOL
     Dosage: UNK
  4. SORAFENIB [Suspect]
     Active Substance: SORAFENIB
     Indication: HEPATOCELLULAR CARCINOMA
     Dosage: 200 MG, BID
     Dates: start: 201706
  5. LOSARTAN. [Concomitant]
     Active Substance: LOSARTAN
     Dosage: UNK
  6. METFORMIN [Concomitant]
     Active Substance: METFORMIN HYDROCHLORIDE
     Dosage: UNK
  7. SORAFENIB [Suspect]
     Active Substance: SORAFENIB
     Indication: METASTASES TO LUNG
     Dosage: 600 MG 200 MG IN THE MORNING AND 400 MG IN THE EVENING
     Dates: start: 201712
  8. SORAFENIB [Suspect]
     Active Substance: SORAFENIB
     Indication: HEPATOCELLULAR CARCINOMA
     Dosage: 200 MG, BID
  9. TACROLIMUS. [Suspect]
     Active Substance: TACROLIMUS
     Indication: HEPATOCELLULAR CARCINOMA
     Dosage: 3 MG, QD
  10. TACROLIMUS. [Suspect]
     Active Substance: TACROLIMUS
     Indication: METASTASES TO LUNG
     Dosage: 4 MG, QD
     Dates: start: 201708

REACTIONS (3)
  - Hepatotoxicity [None]
  - Drug interaction [None]
  - Hepatocellular carcinoma [None]
